FAERS Safety Report 16294795 (Version 1)
Quarter: 2019Q2

REPORT INFORMATION
  Report Type: Spontaneous
  Country: US (occurrence: US)
  Receive Date: 20190509
  Receipt Date: 20190509
  Transmission Date: 20190711
  Serious: No
  Sender: FDA-Public Use
  Company Number: US-ROCHE-2205543

PATIENT
  Sex: Female

DRUGS (2)
  1. VITAMIN A [RETINOL] [Concomitant]
     Active Substance: RETINOL
  2. ESBRIET [Suspect]
     Active Substance: PIRFENIDONE
     Indication: IDIOPATHIC PULMONARY FIBROSIS
     Dosage: ONGOING: YES
     Route: 048
     Dates: start: 201601

REACTIONS (1)
  - Dry mouth [Unknown]
